FAERS Safety Report 25907566 (Version 1)
Quarter: 2025Q4

REPORT INFORMATION
  Report Type: Spontaneous
  Country: US (occurrence: None)
  Receive Date: 20251010
  Receipt Date: 20251010
  Transmission Date: 20260118
  Serious: Yes (Hospitalization)
  Sender: FDA-CTU
  Company Number: None

PATIENT
  Sex: Female

DRUGS (11)
  1. REVLIMID [Suspect]
     Active Substance: LENALIDOMIDE
     Indication: Plasma cell myeloma
     Dosage: TAKE 1 CAPSULE (15 MG TOTAL) BY MOUTH DAILY ON DAYS 1 THROUGH 21 FOLLOWED BY 7 DAYS OFF FOR A 28 DAY CYCLE.?
     Route: 048
     Dates: start: 20250807
  2. ALBUTEROL AER HFA [Concomitant]
  3. CHLORTHALID TAB 25MG [Concomitant]
  4. DEXAMETHASONE [Concomitant]
     Active Substance: DEXAMETHASONE
  5. ELIOUIS TAB 2.5MG [Concomitant]
  6. HYDROCHLOROTTAB50MG [Concomitant]
  7. KLOR-CON M20 TAB 20MEO ER [Concomitant]
  8. LOPERAMIDE CAP 2MG [Concomitant]
  9. LOSARTAN POTASSIUM [Concomitant]
     Active Substance: LOSARTAN POTASSIUM
  10. TRIAMCINOLONE ACETONIDE [Suspect]
     Active Substance: TRIAMCINOLONE ACETONIDE
  11. VITAMIN B-12TAB 1000McG [Concomitant]

REACTIONS (1)
  - Herpes zoster [None]
